FAERS Safety Report 24239032 (Version 4)
Quarter: 2024Q3

REPORT INFORMATION
  Report Type: Report from Study
  Country: CA (occurrence: None)
  Receive Date: 20240822
  Receipt Date: 20240911
  Transmission Date: 20241017
  Serious: Yes (Life-Threatening, Other)
  Sender: ASTRAZENECA
  Company Number: 2024A191307

PATIENT
  Age: 25325 Day
  Sex: Female

DRUGS (16)
  1. FASENRA [Suspect]
     Active Substance: BENRALIZUMAB
     Indication: Asthma
     Dosage: 30.0MG UNKNOWN
     Route: 058
     Dates: start: 20230504
  2. SPIRIVA [Concomitant]
     Active Substance: TIOTROPIUM BROMIDE MONOHYDRATE
  3. SYMBICORT [Concomitant]
     Active Substance: BUDESONIDE\FORMOTEROL FUMARATE DIHYDRATE
  4. VENTOLIN [Concomitant]
     Active Substance: ALBUTEROL SULFATE
  5. PREDNISONE [Concomitant]
     Active Substance: PREDNISONE
  6. AMLODIPINE [Concomitant]
     Active Substance: AMLODIPINE BESYLATE
  7. CANDESARTAN [Concomitant]
     Active Substance: CANDESARTAN
  8. GABAPENTIN [Concomitant]
     Active Substance: GABAPENTIN
  9. BACLOFEN [Concomitant]
     Active Substance: BACLOFEN
  10. CLONAZEPAM [Concomitant]
     Active Substance: CLONAZEPAM
  11. CALCIUM CARBONATE [Concomitant]
     Active Substance: CALCIUM CARBONATE
  12. OMNARIS [Concomitant]
     Active Substance: CICLESONIDE
     Dosage: 2 SPRAYS EACH NOSTRIL BID
  13. ATROVENT [Concomitant]
     Active Substance: IPRATROPIUM BROMIDE
     Dosage: AS NEEDED
     Dates: start: 202304
  14. FLOVENT [Concomitant]
     Active Substance: FLUTICASONE PROPIONATE
     Dosage: 500MCG 1 PUFF BID
     Dates: start: 2018
  15. SPIRIVA RESPIMAT [Concomitant]
     Active Substance: TIOTROPIUM BROMIDE
     Dosage: 1 PUFF OD
     Dates: start: 2018
  16. ZENHALE [Concomitant]
     Active Substance: FORMOTEROL FUMARATE\MOMETASONE FUROATE
     Dosage: 200MCG 2 PUFFS BID
     Dates: start: 2018

REACTIONS (7)
  - Oxygen saturation decreased [Unknown]
  - Cataract [Unknown]
  - Lethargy [Unknown]
  - Asthenia [Unknown]
  - Fatigue [Unknown]
  - Drug ineffective [Unknown]
  - Influenza [Unknown]

NARRATIVE: CASE EVENT DATE: 20240818
